FAERS Safety Report 4416916-6 (Version None)
Quarter: 2004Q3

REPORT INFORMATION
  Report Type: 
  Country: None (occurrence: None)
  Receive Date: 20040806
  Receipt Date: 20040419
  Transmission Date: 20050211
  Serious: Yes (Life-Threatening, Hospitalization)
  Sender: FDA-Public Use
  Company Number: 200411634FR

PATIENT
  Age: 62 Year
  Sex: Female
  Weight: 63 kg

DRUGS (4)
  1. ARAVA [Suspect]
     Indication: RHEUMATOID ARTHRITIS
     Route: 048
     Dates: start: 20010514, end: 20040218
  2. CORTANCYL [Suspect]
     Indication: RHEUMATOID ARTHRITIS
     Route: 048
     Dates: start: 19990101, end: 20040218
  3. DIFFU K [Concomitant]
     Route: 048
     Dates: start: 19990101, end: 20040218
  4. CACIT D3 [Concomitant]
     Route: 048
     Dates: start: 19990101, end: 20040218

REACTIONS (9)
  - COMPUTERISED TOMOGRAM ABNORMAL [None]
  - CYST [None]
  - GASTROENTERITIS [None]
  - INTERSTITIAL LUNG DISEASE [None]
  - LUNG INFECTION [None]
  - MALLORY-WEISS SYNDROME [None]
  - MEDIASTINITIS [None]
  - PLEURAL EFFUSION [None]
  - SCAR [None]
